FAERS Safety Report 8838188 (Version 2)
Quarter: 2015Q3

REPORT INFORMATION
  Report Type: Report from Study
  Country: US (occurrence: US)
  Receive Date: 20121012
  Receipt Date: 20150820
  Transmission Date: 20151125
  Serious: Yes (Other)
  Sender: FDA-Public Use
  Company Number: US-ROCHE-1139856

PATIENT
  Age: 14 Year
  Sex: Male
  Weight: 49.6 kg

DRUGS (20)
  1. PROTROPIN [Suspect]
     Active Substance: SOMATREM
     Route: 058
  2. PROTROPIN [Suspect]
     Active Substance: SOMATREM
     Route: 058
  3. PROTROPIN [Suspect]
     Active Substance: SOMATREM
     Route: 058
  4. PROTROPIN [Suspect]
     Active Substance: SOMATREM
     Route: 058
  5. PROTROPIN [Suspect]
     Active Substance: SOMATREM
     Route: 058
  6. PROTROPIN [Suspect]
     Active Substance: SOMATREM
     Route: 058
  7. PROTROPIN [Suspect]
     Active Substance: SOMATREM
     Indication: GROWTH HORMONE DEFICIENCY
     Route: 058
  8. PROTROPIN [Suspect]
     Active Substance: SOMATREM
     Route: 058
  9. PROTROPIN [Suspect]
     Active Substance: SOMATREM
     Route: 058
  10. PROTROPIN [Suspect]
     Active Substance: SOMATREM
     Route: 058
  11. PROTROPIN [Suspect]
     Active Substance: SOMATREM
     Route: 058
  12. PROTROPIN [Suspect]
     Active Substance: SOMATREM
     Route: 058
  13. PROTROPIN [Suspect]
     Active Substance: SOMATREM
     Route: 058
  14. PROTROPIN [Suspect]
     Active Substance: SOMATREM
     Route: 058
  15. PROTROPIN [Suspect]
     Active Substance: SOMATREM
     Route: 058
  16. PROTROPIN [Suspect]
     Active Substance: SOMATREM
     Route: 058
  17. PROTROPIN [Suspect]
     Active Substance: SOMATREM
     Route: 058
  18. PROTROPIN [Suspect]
     Active Substance: SOMATREM
     Route: 058
  19. PROTROPIN [Suspect]
     Active Substance: SOMATREM
     Route: 058
  20. PANOXYL [Concomitant]
     Active Substance: BENZOYL PEROXIDE

REACTIONS (3)
  - Growth retardation [Unknown]
  - Pneumonia [Unknown]
  - Drug dose omission [Unknown]

NARRATIVE: CASE EVENT DATE: 19980908
